FAERS Safety Report 5123429-5 (Version None)
Quarter: 2006Q4

REPORT INFORMATION
  Report Type: 
  Country: None (occurrence: None)
  Receive Date: 20061005
  Receipt Date: 20060922
  Transmission Date: 20070319
  Serious: Yes (Other)
  Sender: FDA-Public Use
  Company Number: 2006115238

PATIENT
  Age: 81 Year
  Sex: Female

DRUGS (1)
  1. ZYVOX [Suspect]
     Dosage: 1200 MG, INTRAVENOUS
     Route: 042
     Dates: start: 20060916, end: 20060920

REACTIONS (6)
  - CONDITION AGGRAVATED [None]
  - DELIRIUM [None]
  - DYSPHONIA [None]
  - MALAISE [None]
  - PLATELET COUNT DECREASED [None]
  - VOMITING [None]
